FAERS Safety Report 21584255 (Version 1)
Quarter: 2022Q4

REPORT INFORMATION
  Report Type: Spontaneous
  Country: US (occurrence: US)
  Receive Date: 20221111
  Receipt Date: 20221111
  Transmission Date: 20230113
  Serious: Yes (Other)
  Sender: FDA-Public Use
  Company Number: US-HISAMITSU-2022-US-025749

PATIENT
  Age: 59 Year
  Sex: Female
  Weight: 91.17 kg

DRUGS (5)
  1. LIDOCAINE [Suspect]
     Active Substance: LIDOCAINE
     Indication: Analgesic therapy
     Dosage: APPLIED ONE PATCH TO INNER LEFT KNEE
     Route: 061
     Dates: start: 20221022, end: 20221023
  2. Unspecified diabetes medications [Concomitant]
  3. Unspecified COPD medications [Concomitant]
  4. VITAMINS [Concomitant]
     Active Substance: VITAMINS
  5. Unspecified dietary supplements [Concomitant]

REACTIONS (2)
  - Blood glucose increased [Not Recovered/Not Resolved]
  - Application site burn [Not Recovered/Not Resolved]

NARRATIVE: CASE EVENT DATE: 20221023
